FAERS Safety Report 8129937-7 (Version None)
Quarter: 2012Q1

REPORT INFORMATION
  Report Type: 
  Country: None (occurrence: None)
  Receive Date: 20120210
  Receipt Date: 20120209
  Transmission Date: 20120608
  Serious: Yes (Other)
  Sender: FDA-Public Use
  Company Number: SE-PFIZER INC-2012035165

PATIENT
  Sex: Female

DRUGS (2)
  1. ALPRAZOLAM [Suspect]
     Indication: SUICIDE ATTEMPT
  2. ALPRAZOLAM [Suspect]
     Indication: DEPRESSION
     Dosage: UNK

REACTIONS (10)
  - BALANCE DISORDER [None]
  - DEPRESSION [None]
  - DYSGRAPHIA [None]
  - PAIN [None]
  - ASTHENIA [None]
  - BRADYPHRENIA [None]
  - ABDOMINAL PAIN UPPER [None]
  - READING DISORDER [None]
  - ANXIETY [None]
  - DEREALISATION [None]
